FAERS Safety Report 4968473-3 (Version None)
Quarter: 2006Q2

REPORT INFORMATION
  Report Type: 
  Country: None (occurrence: None)
  Receive Date: 20060410
  Receipt Date: 20051004
  Transmission Date: 20061013
  Serious: Yes (Hospitalization, Other)
  Sender: FDA-Public Use
  Company Number: US-MERCK-0510USA03535

PATIENT
  Age: 47 Year
  Sex: Female
  Weight: 77 kg

DRUGS (3)
  1. VIOXX [Suspect]
     Indication: ARTHRALGIA
     Route: 048
     Dates: start: 20000101
  2. VIOXX [Suspect]
     Indication: BACK PAIN
     Route: 048
     Dates: start: 20000101
  3. ASPIRIN [Concomitant]
     Route: 065

REACTIONS (3)
  - CARDIOVASCULAR DISORDER [None]
  - EMBOLISM [None]
  - MYOCARDIAL INFARCTION [None]
